FAERS Safety Report 4536889-5 (Version None)
Quarter: 2004Q4

REPORT INFORMATION
  Report Type: 
  Country: None (occurrence: None)
  Receive Date: 20041223
  Receipt Date: 20041216
  Transmission Date: 20050328
  Serious: Yes (Hospitalization, Other)
  Sender: FDA-Public Use
  Company Number: FR-GLAXOSMITHKLINE-B0362408A

PATIENT
  Age: 26 Year
  Sex: Female

DRUGS (6)
  1. COMBIVIR [Suspect]
     Indication: HIV INFECTION
     Route: 048
     Dates: end: 20041212
  2. ULTIVA [Suspect]
     Indication: PAROTID CYST EXCISION
     Route: 042
     Dates: start: 20041212, end: 20041212
  3. SUCCINYLCHLOLINE CHLORIDE INJ [Suspect]
     Indication: PAROTID CYST EXCISION
     Route: 042
     Dates: start: 20041212, end: 20041212
  4. PROPOFOL [Suspect]
     Indication: PAROTID CYST EXCISION
     Route: 042
     Dates: start: 20041212, end: 20041212
  5. VIRAMUNE [Concomitant]
     Indication: HIV INFECTION
     Route: 048
  6. ORAL CONTRACEPTION [Concomitant]
     Indication: CONTRACEPTION
     Route: 048

REACTIONS (8)
  - BLOOD CREATINE PHOSPHOKINASE INCREASED [None]
  - BONE PAIN [None]
  - DRUG INTERACTION [None]
  - MUSCULAR WEAKNESS [None]
  - PAROTID DUCT CYST [None]
  - POST PROCEDURAL COMPLICATION [None]
  - RENAL FAILURE [None]
  - RHABDOMYOLYSIS [None]
